FAERS Safety Report 10760082 (Version 1)
Quarter: 2015Q1

REPORT INFORMATION
  Report Type: Spontaneous
  Country: AR (occurrence: AR)
  Receive Date: 20150204
  Receipt Date: 20150204
  Transmission Date: 20150721
  Serious: Yes (Other)
  Sender: FDA-Public Use
  Company Number: AR-AMGEN-ARGSP2015008319

PATIENT
  Age: 42 Year
  Sex: Female

DRUGS (1)
  1. ENBREL [Suspect]
     Active Substance: ETANERCEPT
     Indication: RHEUMATOID ARTHRITIS
     Dosage: 50 MG, EVERY FIFTEEN DAYS
     Route: 065
     Dates: start: 20120927

REACTIONS (3)
  - Malaise [Unknown]
  - Urinary tract infection [Unknown]
  - Cellulitis [Unknown]

NARRATIVE: CASE EVENT DATE: 2013
